FAERS Safety Report 8603611-2 (Version None)
Quarter: 2012Q3

REPORT INFORMATION
  Report Type: 
  Country: None (occurrence: None)
  Receive Date: 20120817
  Receipt Date: 20120808
  Transmission Date: 20120928
  Serious: Yes (Other)
  Sender: FDA-Public Use
  Company Number: US-ASTRAZENECA-2011SE41220

PATIENT
  Age: 70 Year
  Sex: Female
  Weight: 58.1 kg

DRUGS (4)
  1. SPIRIVA [Concomitant]
  2. SYMBICORT [Suspect]
     Dosage: 160/4.5 UG DAILY
     Route: 055
     Dates: start: 20110607
  3. FLUTICASONE PROPIONATE [Concomitant]
     Route: 045
  4. PROAIR HFA [Concomitant]

REACTIONS (9)
  - UPPER-AIRWAY COUGH SYNDROME [None]
  - SINUSITIS [None]
  - FATIGUE [None]
  - EMPHYSEMA [None]
  - DYSPHONIA [None]
  - PAIN [None]
  - LUNG DISORDER [None]
  - MULTIPLE ALLERGIES [None]
  - INCREASED UPPER AIRWAY SECRETION [None]
